FAERS Safety Report 17741314 (Version 1)
Quarter: 2020Q2

REPORT INFORMATION
  Report Type: Report from Study
  Country: BR (occurrence: BR)
  Receive Date: 20200504
  Receipt Date: 20200504
  Transmission Date: 20200714
  Serious: Yes (Other)
  Sender: FDA-Public Use
  Company Number: NVSC2020BR117018

PATIENT
  Age: 45 Year
  Sex: Female

DRUGS (1)
  1. ENTRESTO [Suspect]
     Active Substance: SACUBITRIL\VALSARTAN
     Indication: CARDIAC FAILURE
     Dosage: 100 MG, (49/51 MG)
     Route: 065
     Dates: start: 202001

REACTIONS (4)
  - Dizziness [Unknown]
  - Malaise [Unknown]
  - Angina pectoris [Unknown]
  - Hypotension [Unknown]

NARRATIVE: CASE EVENT DATE: 20200426
